FAERS Safety Report 9689319 (Version 2)
Quarter: 2013Q4

REPORT INFORMATION
  Report Type: Spontaneous
  Country: US (occurrence: US)
  Receive Date: 20131114
  Receipt Date: 20131223
  Transmission Date: 20140711
  Serious: Yes (Disabling)
  Sender: FDA-Public Use
  Company Number: US-PFIZER INC-2013322846

PATIENT
  Age: 55 Year
  Sex: Female
  Weight: 79.4 kg

DRUGS (3)
  1. EFFEXOR XR [Suspect]
     Indication: DEPRESSION
     Dosage: 450 MG (THREE 150MG CAPSULE), 1X/DAY
     Route: 048
  2. PREMPRO [Concomitant]
     Dosage: UNK
  3. GABAPENTIN [Concomitant]
     Dosage: 800 MG, 3X/DAY

REACTIONS (9)
  - Activities of daily living impaired [Unknown]
  - Cognitive disorder [Unknown]
  - Learning disability [Unknown]
  - Memory impairment [Unknown]
  - Confusional state [Unknown]
  - Hypoaesthesia [Unknown]
  - Musculoskeletal disorder [Unknown]
  - Musculoskeletal disorder [Unknown]
  - Nerve compression [Unknown]
